FAERS Safety Report 4281914-2 (Version None)
Quarter: 2004Q1

REPORT INFORMATION
  Report Type: 
  Country: None (occurrence: None)
  Receive Date: 20040128
  Receipt Date: 20040115
  Transmission Date: 20041129
  Serious: Yes (Hospitalization)
  Sender: FDA-Public Use
  Company Number: LBID00204000172

PATIENT
  Age: 45 Year
  Sex: Female

DRUGS (6)
  1. LITHIUM CARBONATE [Suspect]
     Indication: ILL-DEFINED DISORDER
     Dosage: DAILY PO
     Route: 048
  2. FLUPHENAZINE [Concomitant]
  3. THIORIDAZINE HCL [Concomitant]
  4. TRIHEHYPHENIDYL (TRIHEXYPHENIDYL) [Concomitant]
  5. CARBAMAZEPINE [Concomitant]
  6. L-THYROXINE (L-THYROXINE) [Concomitant]

REACTIONS (4)
  - CANDIDURIA [None]
  - DIABETES INSIPIDUS [None]
  - DIABETIC HYPEROSMOLAR COMA [None]
  - HYPOTENSION [None]
